FAERS Safety Report 20724608 (Version 1)
Quarter: 2022Q2

REPORT INFORMATION
  Report Type: Spontaneous
  Country: US (occurrence: None)
  Receive Date: 20220419
  Receipt Date: 20220419
  Transmission Date: 20220721
  Serious: No
  Sender: FDA-Public Use
  Company Number: 2022A153719

PATIENT
  Sex: Female

DRUGS (1)
  1. NEXIUM [Suspect]
     Active Substance: ESOMEPRAZOLE MAGNESIUM
     Route: 048

REACTIONS (8)
  - Cough [Unknown]
  - Atrial fibrillation [Unknown]
  - Cardiac flutter [Unknown]
  - Malaise [Unknown]
  - Diabetes mellitus [Unknown]
  - Vomiting [Unknown]
  - Illness [Unknown]
  - Unevaluable event [Unknown]
